FAERS Safety Report 8520750 (Version 2)
Quarter: 2012Q4

REPORT INFORMATION
  Report Type: 
  Country: US (occurrence: US)
  Receive Date: 20120418
  Receipt Date: 20121120
  Transmission Date: 20130627
  Serious: No
  Sender: FDA-Public Use
  Company Number: US-ASTRAZENECA-2011SE62435

PATIENT
  Age: 57 Year
  Sex: Female

DRUGS (2)
  1. NEXIUM [Suspect]
     Route: 048
     Dates: start: 2006
  2. LOSARTAN [Concomitant]

REACTIONS (26)
  - Pain [Unknown]
  - Throat irritation [Unknown]
  - Chest pain [Unknown]
  - Proctalgia [Unknown]
  - Rectal haemorrhage [Unknown]
  - Pulmonary granuloma [Unknown]
  - Pulmonary mass [Unknown]
  - Lung infection [Unknown]
  - Hepatic cyst [Unknown]
  - Dyspepsia [Unknown]
  - Peptic ulcer [Unknown]
  - Oesophagitis ulcerative [Unknown]
  - Colon neoplasm [Unknown]
  - Anal fissure [Unknown]
  - Haemorrhoids [Unknown]
  - Back pain [Unknown]
  - Neck pain [Unknown]
  - Cough [Unknown]
  - Gastrooesophageal reflux disease [Unknown]
  - Eczema [Unknown]
  - Headache [Unknown]
  - Abdominal pain [Unknown]
  - Abdominal pain upper [Unknown]
  - Constipation [Unknown]
  - Oedema peripheral [Unknown]
  - Drug dose omission [Unknown]
